FAERS Safety Report 8240562-X (Version None)
Quarter: 2012Q1

REPORT INFORMATION
  Report Type: 
  Country: None (occurrence: None)
  Receive Date: 20120328
  Receipt Date: 20120313
  Transmission Date: 20120608
  Serious: Yes (Other)
  Sender: FDA-Public Use
  Company Number: US-ROCHE-1049791

PATIENT
  Sex: Female

DRUGS (9)
  1. TORADOL [Suspect]
     Indication: PRODUCT USED FOR UNKNOWN INDICATION
  2. LYRICA [Suspect]
     Indication: FIBROMYALGIA
     Route: 048
     Dates: start: 20111026
  3. AMOXIL [Concomitant]
     Route: 048
  4. PRILOSEC [Concomitant]
  5. ZESTORETIC [Concomitant]
     Dosage: 10/12.5 DAILY
  6. FLONASE [Concomitant]
     Dosage: 2 SQUIRTS EACH NOSTRIL DAILY
  7. ADIPEX [Concomitant]
     Dosage: ONCE DAILY
  8. LOVASTATIN [Concomitant]
  9. ULTRAM [Concomitant]
     Dosage: PRN

REACTIONS (4)
  - DRUG HYPERSENSITIVITY [None]
  - MALAISE [None]
  - FIBROMYALGIA [None]
  - PAIN [None]
